FAERS Safety Report 7041454-4 (Version None)
Quarter: 2010Q4

REPORT INFORMATION
  Report Type: 
  Country: None (occurrence: None)
  Receive Date: 20101013
  Receipt Date: 20101011
  Transmission Date: 20110411
  Serious: Yes (Hospitalization)
  Sender: FDA-Public Use
  Company Number: BR-ROCHE-730702

PATIENT
  Sex: Female
  Weight: 54 kg

DRUGS (6)
  1. TOCILIZUMAB [Suspect]
     Indication: RHEUMATOID ARTHRITIS
     Dosage: FORM:INFUSION
     Route: 042
     Dates: start: 20100422, end: 20100601
  2. OMEPRAZOLE [Concomitant]
  3. METHOTREXATE [Concomitant]
     Dosage: OSAGE REPORTED AS 50 MG/1 ML
  4. FOLIC ACID [Concomitant]
  5. PROFENID [Concomitant]
  6. CALTRATE [Concomitant]

REACTIONS (1)
  - BREAST CANCER [None]
